FAERS Safety Report 9224448 (Version 1)
Quarter: 2013Q1

REPORT INFORMATION
  Report Type: Spontaneous
  Country: US (occurrence: None)
  Receive Date: 20120917
  Receipt Date: 20120917
  Transmission Date: 20140127
  Serious: Yes (Disabling)
  Sender: FDA-Public Use
  Company Number: 2012SP033920

PATIENT
  Age: 35 Year
  Sex: Female

DRUGS (1)
  1. IMPLANON (68 MG) [Suspect]
     Indication: CONTRACEPTION
     Route: 058
     Dates: start: 20110509, end: 20120618

REACTIONS (4)
  - Menorrhagia [None]
  - Tremor [None]
  - Headache [None]
  - Dizziness [None]
